FAERS Safety Report 9425910 (Version 1)
Quarter: 2013Q3

REPORT INFORMATION
  Report Type: Spontaneous
  Country: AT (occurrence: AT)
  Receive Date: 20130729
  Receipt Date: 20130729
  Transmission Date: 20140515
  Serious: Yes (Other)
  Sender: FDA-Public Use
  Company Number: AT-B.I. PHARMACEUTICALS,INC./RIDGEFIELD-2013-AP-00521AP

PATIENT
  Age: 57 Year
  Sex: Male
  Weight: 110 kg

DRUGS (3)
  1. PRADAXA [Suspect]
     Indication: THROMBOSIS
     Dosage: 150 MG
     Dates: start: 2010
  2. PRADAXA [Suspect]
     Indication: PULMONARY EMBOLISM
  3. SELENEASE [Concomitant]
     Dosage: 100 MG

REACTIONS (4)
  - Renal neoplasm [Unknown]
  - Haemorrhoids [Recovered/Resolved]
  - Gastrooesophageal reflux disease [Recovered/Resolved]
  - Initial insomnia [Recovered/Resolved]
